FAERS Safety Report 16878807 (Version 2)
Quarter: 2019Q4

REPORT INFORMATION
  Report Type: Report from Study
  Country: CO (occurrence: CO)
  Receive Date: 20191002
  Receipt Date: 20191210
  Transmission Date: 20200122
  Serious: Yes (Hospitalization)
  Sender: FDA-Public Use
  Company Number: PHHY2019CO227481

PATIENT
  Sex: Male
  Weight: 28 kg

DRUGS (1)
  1. OMNITROPE [Suspect]
     Active Substance: SOMATROPIN
     Indication: GROWTH HORMONE DEFICIENCY
     Dosage: 0.1 MG, QD
     Route: 058
     Dates: start: 20180313, end: 20190920

REACTIONS (2)
  - Bile duct obstruction [Not Recovered/Not Resolved]
  - Blood glucose increased [Not Recovered/Not Resolved]
